FAERS Safety Report 7161574-3 (Version None)
Quarter: 2010Q4

REPORT INFORMATION
  Report Type: 
  Country: None (occurrence: None)
  Receive Date: 20101215
  Receipt Date: 20101206
  Transmission Date: 20110411
  Serious: Yes (Other)
  Sender: FDA-Public Use
  Company Number: JP-JNJFOC-20101204323

PATIENT
  Age: 57 Year
  Sex: Female
  Weight: 47 kg

DRUGS (2)
  1. REMICADE [Suspect]
     Indication: RHEUMATOID ARTHRITIS
     Route: 042
  2. REMICADE [Suspect]
     Dosage: 28 INFUSIONS; DATES UNSPECIFIED
     Route: 042

REACTIONS (1)
  - CERVIX DISORDER [None]
